FAERS Safety Report 7338397-5 (Version None)
Quarter: 2011Q1

REPORT INFORMATION
  Report Type: 
  Country: None (occurrence: None)
  Receive Date: 20110308
  Receipt Date: 20110301
  Transmission Date: 20110831
  Serious: No
  Sender: FDA-Public Use
  Company Number: US-JNJFOC-20110301527

PATIENT
  Sex: Male
  Weight: 86.18 kg

DRUGS (2)
  1. MANY OTHER UNSPECIFIED MEDICATIONS [Concomitant]
     Route: 065
  2. FENTANYL-100 [Suspect]
     Indication: PAIN IN EXTREMITY
     Dosage: NDC#: 0781-7112-55
     Route: 062

REACTIONS (3)
  - DRUG DISPENSING ERROR [None]
  - WRONG TECHNIQUE IN DRUG USAGE PROCESS [None]
  - EXPIRED DRUG ADMINISTERED [None]
